FAERS Safety Report 17950661 (Version 2)
Quarter: 2020Q3

REPORT INFORMATION
  Report Type: Spontaneous
  Country: GB (occurrence: GB)
  Receive Date: 20200626
  Receipt Date: 20200717
  Transmission Date: 20201103
  Serious: Yes (Other)
  Sender: FDA-Public Use
  Company Number: NVSC2020GB179454

PATIENT
  Age: 56 Year
  Sex: Female

DRUGS (2)
  1. LITAK [Suspect]
     Active Substance: CLADRIBINE
     Indication: PRIMARY PROGRESSIVE MULTIPLE SCLEROSIS
     Dosage: UNK
     Route: 065
  2. FAMCICLOVIR. [Suspect]
     Active Substance: FAMCICLOVIR
     Indication: ANTIVIRAL PROPHYLAXIS
     Dosage: 250 MG, QHS
     Route: 065

REACTIONS (3)
  - Oedema peripheral [Unknown]
  - Eyelid oedema [Unknown]
  - Off label use [Unknown]
